FAERS Safety Report 7250458-8 (Version None)
Quarter: 2011Q1

REPORT INFORMATION
  Report Type: 
  Country: None (occurrence: None)
  Receive Date: 20110121
  Receipt Date: 20110121
  Transmission Date: 20110831
  Serious: Yes (Other)
  Sender: FDA-Public Use
  Company Number: None

PATIENT
  Sex: Male
  Weight: 107.0489 kg

DRUGS (1)
  1. FERAHEME [Suspect]
     Indication: IRON DEFICIENCY ANAEMIA
     Dosage: 510 MG/17 ML ONCE IV BOLUS
     Route: 040
     Dates: start: 20110119, end: 20110119

REACTIONS (2)
  - PAIN IN EXTREMITY [None]
  - BACK PAIN [None]
